FAERS Safety Report 8053072-X (Version None)
Quarter: 2012Q1

REPORT INFORMATION
  Report Type: 
  Country: None (occurrence: None)
  Receive Date: 20120112
  Receipt Date: 20111228
  Transmission Date: 20120608
  Serious: Yes (Life-Threatening, Disabling, Other)
  Sender: FDA-Public Use
  Company Number: CRC-11-349

PATIENT
  Age: 74 Year
  Sex: Female
  Weight: 65.7716 kg

DRUGS (1)
  1. PHENYTOIN SODIUM [Suspect]
     Indication: EPILEPSY
     Dosage: 1 CAPS 2X/DAY; ORAL
     Route: 048
     Dates: start: 20090101

REACTIONS (3)
  - LYMPHADENOPATHY [None]
  - PRODUCT SUBSTITUTION ISSUE [None]
  - NEUROENDOCRINE CARCINOMA OF THE SKIN [None]
